FAERS Safety Report 12560812 (Version 1)
Quarter: 2016Q3

REPORT INFORMATION
  Report Type: Spontaneous
  Country: US (occurrence: US)
  Receive Date: 20160715
  Receipt Date: 20160715
  Transmission Date: 20161109
  Serious: Yes (Other)
  Sender: FDA-Public Use
  Company Number: US-PFIZER INC-2016345778

PATIENT
  Sex: Male

DRUGS (3)
  1. ANDROGEL [Suspect]
     Active Substance: TESTOSTERONE
     Indication: HORMONE REPLACEMENT THERAPY
     Dosage: UNK
     Dates: start: 200203, end: 201408
  2. ANDRODERM [Suspect]
     Active Substance: TESTOSTERONE
     Indication: HORMONE REPLACEMENT THERAPY
     Dosage: UNK
     Dates: start: 200203, end: 201408
  3. DEPO-TESTOSTERONE [Suspect]
     Active Substance: TESTOSTERONE CYPIONATE
     Indication: HORMONE REPLACEMENT THERAPY
     Dosage: UNK
     Dates: start: 200203, end: 201408

REACTIONS (1)
  - Deep vein thrombosis [Unknown]

NARRATIVE: CASE EVENT DATE: 200303
